FAERS Safety Report 9775004 (Version 1)
Quarter: 2013Q4

REPORT INFORMATION
  Report Type: Spontaneous
  Country: US (occurrence: US)
  Receive Date: 20131220
  Receipt Date: 20131220
  Transmission Date: 20140711
  Serious: No
  Sender: FDA-Public Use
  Company Number: US-GLAXOSMITHKLINE-A1035428A

PATIENT
  Age: 50 Year
  Sex: Male

DRUGS (7)
  1. AVODART [Suspect]
     Indication: BENIGN PROSTATIC HYPERPLASIA
     Dosage: .5MG ALTERNATE DAYS
     Route: 048
  2. FLOMAX [Concomitant]
  3. BYSTOLIC [Concomitant]
  4. CIALIS [Concomitant]
  5. CABERGOLINE [Concomitant]
  6. LOSARTAN [Concomitant]
  7. AMINO ACID SUPPLEMENT [Concomitant]

REACTIONS (2)
  - Dihydrotestosterone increased [Unknown]
  - Depression [Unknown]
